FAERS Safety Report 7398044-3 (Version None)
Quarter: 2011Q2

REPORT INFORMATION
  Report Type: 
  Country: None (occurrence: None)
  Receive Date: 20110406
  Receipt Date: 20110323
  Transmission Date: 20111010
  Serious: Yes (Life-Threatening, Hospitalization)
  Sender: FDA-Public Use
  Company Number: DK-JNJFOC-20100905311

PATIENT
  Sex: Male

DRUGS (5)
  1. PREDNISOLONE [Concomitant]
     Indication: URTICARIA
  2. REMICADE [Suspect]
     Indication: ANKYLOSING SPONDYLITIS
     Route: 042
  3. HUMIRA [Suspect]
     Indication: ANKYLOSING SPONDYLITIS
  4. METHOTREXATE [Concomitant]
  5. METHOTREXATE [Concomitant]
     Indication: URTICARIA

REACTIONS (9)
  - PROSTATE CANCER [None]
  - COUGH [None]
  - BONE MARROW GRANULOMA [None]
  - BONE MARROW FAILURE [None]
  - SARCOIDOSIS [None]
  - PNEUMONIA [None]
  - INFECTION [None]
  - HEPATIC CIRRHOSIS [None]
  - THROMBOCYTOPENIA [None]
